FAERS Safety Report 8926135 (Version 1)
Quarter: 2012Q4

REPORT INFORMATION
  Report Type: 
  Country: NL (occurrence: NL)
  Receive Date: 20121127
  Receipt Date: 20121127
  Transmission Date: 20130627
  Serious: Yes (Hospitalization)
  Sender: FDA-Public Use
  Company Number: NL-AMGEN-NLDSP2012074794

PATIENT
  Age: 64 Year
  Sex: Female

DRUGS (7)
  1. NEULASTA [Suspect]
     Indication: BREAST CANCER
     Dosage: 6 mg, UNK
     Route: 058
  2. XGEVA [Suspect]
     Dosage: UNK
  3. OXINORM                            /00045603/ [Concomitant]
     Dosage: UNK
  4. PARACETAMOL [Concomitant]
     Dosage: UNK
  5. EMEND                              /01627301/ [Concomitant]
     Dosage: UNK
  6. PRIMPERAN [Concomitant]
     Dosage: UNK
  7. CALCIUM [Concomitant]
     Dosage: UNK

REACTIONS (3)
  - Pain [Unknown]
  - Myalgia [Unknown]
  - Bone pain [Unknown]
